FAERS Safety Report 15747175 (Version 1)
Quarter: 2018Q4

REPORT INFORMATION
  Report Type: Spontaneous
  Country: US (occurrence: US)
  Receive Date: 20181220
  Receipt Date: 20181220
  Transmission Date: 20190205
  Serious: No
  Sender: FDA-Public Use
  Company Number: US-AVADEL SPECIALTY PHARMACEUTICALS, LLC-2018AVA00477

PATIENT
  Age: 67 Year
  Sex: Female

DRUGS (1)
  1. NOCTIVA [Suspect]
     Active Substance: DESMOPRESSIN ACETATE
     Indication: HYPERTONIC BLADDER
     Dosage: 0.83 ?G, 1X/DAY BEFORE BED
     Route: 045
     Dates: start: 20181003, end: 2018

REACTIONS (5)
  - Paraesthesia [Unknown]
  - Abdominal pain upper [Unknown]
  - Blood sodium decreased [Unknown]
  - Off label use [Recovered/Resolved]
  - Muscle spasms [Unknown]

NARRATIVE: CASE EVENT DATE: 2018
